FAERS Safety Report 16572007 (Version 2)
Quarter: 2019Q3

REPORT INFORMATION
  Report Type: Spontaneous
  Country: US (occurrence: US)
  Receive Date: 20190715
  Receipt Date: 20190723
  Transmission Date: 20191004
  Serious: No
  Sender: FDA-Public Use
  Company Number: US-PFIZER INC-2019295034

PATIENT
  Age: 10 Year
  Sex: Male
  Weight: 25 kg

DRUGS (5)
  1. GENOTROPIN [Suspect]
     Active Substance: SOMATROPIN
     Indication: BODY HEIGHT BELOW NORMAL
     Dosage: 1.2 MG, UNK
  2. GENOTROPIN [Suspect]
     Active Substance: SOMATROPIN
     Indication: GROWTH HORMONE DEFICIENCY
     Dosage: UNK
     Dates: start: 201801
  3. FOCALIN [DEXAMETHASONE;OFLOXACIN HYDROCHLORIDE] [Concomitant]
     Indication: ATTENTION DEFICIT/HYPERACTIVITY DISORDER
     Dosage: UNK
  4. FOCALIN [DEXAMETHASONE;OFLOXACIN HYDROCHLORIDE] [Concomitant]
     Indication: DISTURBANCE IN ATTENTION
     Dosage: 20 MG, DAILY (TAKES FOCALIN XR 15MG IN THE MORNINGS AND TAKES STANDARD FOCALIN 5MG AT 2:00PM )
     Route: 048
  5. FOCALIN [DEXAMETHASONE;OFLOXACIN HYDROCHLORIDE] [Concomitant]
     Dosage: 10 MG, UNK

REACTIONS (1)
  - Therapeutic product effect incomplete [Unknown]

NARRATIVE: CASE EVENT DATE: 20190703
